FAERS Safety Report 7770289-X (Version None)
Quarter: 2011Q3

REPORT INFORMATION
  Report Type: 
  Country: None (occurrence: None)
  Receive Date: 20110922
  Receipt Date: 20110119
  Transmission Date: 20111222
  Serious: No
  Sender: FDA-Public Use
  Company Number: US-ASTRAZENECA-2010SE56730

PATIENT
  Sex: Male

DRUGS (4)
  1. SEROQUEL [Suspect]
     Dosage: GENERIC SEROQUEL
     Route: 048
  2. LUPRON [Concomitant]
  3. ATENOLOL [Concomitant]
  4. SEROQUEL [Suspect]
     Indication: DEMENTIA ALZHEIMER'S TYPE
     Route: 048

REACTIONS (3)
  - AGGRESSION [None]
  - TREMOR [None]
  - DRUG DOSE OMISSION [None]
